FAERS Safety Report 16571675 (Version 1)
Quarter: 2019Q3

REPORT INFORMATION
  Report Type: Report from Study
  Country: ES (occurrence: ES)
  Receive Date: 20190715
  Receipt Date: 20190715
  Transmission Date: 20191004
  Serious: Yes (Hospitalization)
  Sender: FDA-Public Use
  Company Number: ES-ELI_LILLY_AND_COMPANY-ES201905010992

PATIENT
  Sex: Female

DRUGS (2)
  1. CALCIO [CALCIUM] [Concomitant]
     Indication: OSTEOPOROSIS
     Dosage: 1 DOSAGE FORM, DAILY
  2. TERIPARATIDE [Suspect]
     Active Substance: TERIPARATIDE
     Indication: OSTEOPOROSIS
     Dosage: 20 UG, UNKNOWN
     Route: 058
     Dates: start: 20190429

REACTIONS (5)
  - Dizziness [Unknown]
  - Gait disturbance [Not Recovered/Not Resolved]
  - Pain [Not Recovered/Not Resolved]
  - Blood pressure decreased [Unknown]
  - Spinal fracture [Unknown]
